FAERS Safety Report 14370883 (Version 1)
Quarter: 2020Q3

REPORT INFORMATION
  Report Type: Report from Study
  Country: IN (occurrence: IN)
  Receive Date: 20180110
  Receipt Date: 20180110
  Transmission Date: 20201104
  Serious: Yes (Hospitalization)
  Sender: FDA-Public Use
  Company Number: IN-ASTRAZENECA-2017SE56736

PATIENT
  Age: 20384 Day
  Sex: Male

DRUGS (41)
  1. EMESET [Concomitant]
     Active Substance: ONDANSETRON HYDROCHLORIDE
     Indication: VOMITING
     Route: 042
     Dates: start: 20170415, end: 20170415
  2. PREGABALIN. [Concomitant]
     Active Substance: PREGABALIN
     Indication: PAIN
     Route: 048
     Dates: start: 20170511
  3. WYSOLONE [Concomitant]
     Active Substance: PREDNISOLONE
     Indication: DIARRHOEA
     Route: 048
     Dates: start: 20170523, end: 20170524
  4. MORPHINE [Concomitant]
     Active Substance: MORPHINE
     Indication: PAIN
     Dosage: 10 MG FIVE TIMES
     Route: 048
     Dates: start: 20170511, end: 20170519
  5. ENTEROGERMINA [Concomitant]
     Active Substance: BACILLUS SUBTILIS
     Indication: DIARRHOEA
     Dosage: 1000 MILLION TID
     Route: 048
     Dates: start: 20170519, end: 20170520
  6. TREMELIMUMAB. [Suspect]
     Active Substance: TREMELIMUMAB
     Indication: NON-SMALL CELL LUNG CANCER
     Route: 042
     Dates: start: 20170415, end: 20170415
  7. TREMELIMUMAB. [Suspect]
     Active Substance: TREMELIMUMAB
     Indication: NON-SMALL CELL LUNG CANCER
     Route: 042
     Dates: start: 20170511, end: 20170511
  8. EMESET [Concomitant]
     Active Substance: ONDANSETRON HYDROCHLORIDE
     Indication: NAUSEA
     Dosage: 4.0MG AS REQUIRED
     Route: 048
     Dates: start: 20170415
  9. FENTANYL. [Concomitant]
     Active Substance: FENTANYL
     Indication: PAIN
     Dosage: 50 UG EVERY 72 HOURS
     Route: 061
     Dates: start: 20170414
  10. PIROXICAM. [Concomitant]
     Active Substance: PIROXICAM
     Indication: PAIN
     Route: 048
     Dates: start: 20170520, end: 20170524
  11. PANTOCID [Concomitant]
     Indication: HYPERCHLORHYDRIA
     Route: 042
     Dates: start: 20170523, end: 20170524
  12. PAN DSR [Concomitant]
     Indication: HYPERCHLORHYDRIA
     Dosage: BID
     Route: 048
     Dates: start: 20170524, end: 20170525
  13. FENTANYL. [Concomitant]
     Active Substance: FENTANYL
     Indication: NEUROLOGICAL SYMPTOM
     Dosage: 50 UG/HR EVERY 2 WEEKS
     Route: 061
     Dates: start: 20170511, end: 20170514
  14. METROGYL [Concomitant]
     Active Substance: METRONIDAZOLE
     Indication: INFECTION
     Route: 042
     Dates: start: 20170519, end: 20170523
  15. RACECADOTRIL [Concomitant]
     Active Substance: RACECADOTRIL
     Indication: DIARRHOEA
     Route: 048
     Dates: start: 20170519, end: 20170520
  16. MOBIZOX [Concomitant]
     Indication: PAIN
     Dosage: BID
     Route: 048
     Dates: start: 20170511, end: 20170519
  17. MEDI4736 [Suspect]
     Active Substance: DURVALUMAB
     Indication: NON-SMALL CELL LUNG CANCER
     Route: 042
     Dates: start: 20170511, end: 20170511
  18. EMESET [Concomitant]
     Active Substance: ONDANSETRON HYDROCHLORIDE
     Indication: NAUSEA
     Route: 042
     Dates: start: 20170415, end: 20170415
  19. FENTANYL. [Concomitant]
     Active Substance: FENTANYL
     Indication: NEUROLOGICAL SYMPTOM
     Dosage: 50 UG EVERY 72 HOURS
     Route: 061
     Dates: start: 20170414
  20. MAGNEX FORTE [Concomitant]
     Active Substance: CEFOPERAZONE SODIUM\SULBACTAM SODIUM
     Indication: INFECTION
     Route: 042
     Dates: start: 20170519, end: 20170524
  21. A?HYDROCORT [Concomitant]
     Active Substance: HYDROCORTISONE SODIUM SUCCINATE
     Indication: DIARRHOEA
     Route: 048
     Dates: start: 20170519, end: 20170523
  22. CROCIN [Concomitant]
     Active Substance: ACETAMINOPHEN
     Indication: PAIN
     Route: 042
     Dates: start: 20170519, end: 20170524
  23. CROCIN [Concomitant]
     Active Substance: ACETAMINOPHEN
     Indication: PAIN
     Route: 048
     Dates: start: 20170524, end: 20170525
  24. NUCOXIA [Concomitant]
     Active Substance: ETORICOXIB
     Indication: PAIN
     Route: 048
     Dates: start: 20170524, end: 20170525
  25. MEDI4736 [Suspect]
     Active Substance: DURVALUMAB
     Indication: NON-SMALL CELL LUNG CANCER
     Route: 042
     Dates: start: 20170415, end: 20170415
  26. FENTANYL. [Concomitant]
     Active Substance: FENTANYL
     Indication: PAIN
     Route: 061
     Dates: start: 20170523
  27. PIROXICAM. [Concomitant]
     Active Substance: PIROXICAM
     Indication: PAIN
     Route: 048
     Dates: start: 20170519, end: 20170520
  28. MUCAINE GEL [Concomitant]
     Indication: HYPERCHLORHYDRIA
     Route: 048
     Dates: start: 20170523, end: 20170524
  29. METHYLCOBAL [Concomitant]
     Active Substance: METHYLCOBALAMIN
     Indication: VITAMIN SUPPLEMENTATION
     Route: 048
     Dates: start: 20170524, end: 20170525
  30. RANTAC [Concomitant]
     Active Substance: RANITIDINE HYDROCHLORIDE
     Indication: HYPERCHLORHYDRIA
     Route: 042
     Dates: start: 20170511, end: 20170511
  31. EMESET [Concomitant]
     Active Substance: ONDANSETRON HYDROCHLORIDE
     Indication: VOMITING
     Dosage: 4.0MG AS REQUIRED
     Route: 048
     Dates: start: 20170415
  32. EMESET [Concomitant]
     Active Substance: ONDANSETRON HYDROCHLORIDE
     Indication: NAUSEA
     Dosage: 8.0MG AS REQUIRED
     Route: 042
     Dates: start: 20170519, end: 20170524
  33. PERINORM [Concomitant]
     Indication: VOMITING
     Route: 048
     Dates: start: 20170523, end: 20170524
  34. TRD CONTIN [Concomitant]
     Indication: PAIN
     Route: 048
     Dates: start: 20170524, end: 20170525
  35. EMESET [Concomitant]
     Active Substance: ONDANSETRON HYDROCHLORIDE
     Indication: VOMITING
     Dosage: 8.0MG AS REQUIRED
     Route: 042
     Dates: start: 20170519, end: 20170524
  36. FENTANYL. [Concomitant]
     Active Substance: FENTANYL
     Indication: NEUROLOGICAL SYMPTOM
     Route: 061
     Dates: start: 20170523
  37. FENTANYL. [Concomitant]
     Active Substance: FENTANYL
     Indication: PAIN
     Dosage: 50 UG/HR EVERY 2 WEEKS
     Route: 061
     Dates: start: 20170511, end: 20170514
  38. TRAMADOL. [Concomitant]
     Active Substance: TRAMADOL
     Indication: PAIN
     Route: 042
     Dates: start: 20170519, end: 20170524
  39. FLUPIRTINE [Concomitant]
     Active Substance: FLUPIRTINE
     Indication: PAIN
     Route: 048
     Dates: start: 20170524, end: 20170525
  40. AVIL [Concomitant]
     Active Substance: PHENIRAMINE
     Indication: HYPERSENSITIVITY
     Route: 042
     Dates: start: 20170511, end: 20170511
  41. TRYPTOMER [Concomitant]
     Active Substance: AMITRIPTYLINE
     Indication: DEPRESSION
     Route: 048
     Dates: start: 20170511, end: 20170519

REACTIONS (1)
  - Gastroenteritis [Recovered/Resolved]

NARRATIVE: CASE EVENT DATE: 20170525
